FAERS Safety Report 13211515 (Version 1)
Quarter: 2017Q1

REPORT INFORMATION
  Report Type: Spontaneous
  Country: JP (occurrence: JP)
  Receive Date: 20170210
  Receipt Date: 20170210
  Transmission Date: 20170428
  Serious: Yes (Hospitalization)
  Sender: FDA-Public Use
  Company Number: JP-GLAXOSMITHKLINE-JP2017GSK019094

PATIENT
  Age: 9 Decade
  Sex: Female

DRUGS (1)
  1. OMEGA-3-ACID ETHYL ESTERS. [Suspect]
     Active Substance: OMEGA-3-ACID ETHYL ESTERS
     Indication: PRODUCT USED FOR UNKNOWN INDICATION
     Dosage: 2 G, 1D
     Route: 048
     Dates: start: 20160622, end: 20161107

REACTIONS (1)
  - Tumour marker abnormal [Recovering/Resolving]

NARRATIVE: CASE EVENT DATE: 20161107
